FAERS Safety Report 25413933 (Version 2)
Quarter: 2025Q2

REPORT INFORMATION
  Report Type: Report from Study
  Country: FR (occurrence: FR)
  Receive Date: 20250609
  Receipt Date: 20250612
  Transmission Date: 20250716
  Serious: Yes (Hospitalization)
  Sender: NOVARTIS
  Company Number: FR-002147023-NVSC2025FR090617

PATIENT
  Sex: Female
  Weight: 57 kg

DRUGS (2)
  1. SCEMBLIX [Suspect]
     Active Substance: ASCIMINIB HYDROCHLORIDE
     Indication: Philadelphia chromosome positive
     Dosage: 80 MG, QD
     Route: 048
     Dates: start: 20250320, end: 20250508
  2. SCEMBLIX [Suspect]
     Active Substance: ASCIMINIB HYDROCHLORIDE
     Indication: Chronic myeloid leukaemia

REACTIONS (3)
  - Lung disorder [Recovering/Resolving]
  - Pleural effusion [Recovering/Resolving]
  - Infection [Recovering/Resolving]

NARRATIVE: CASE EVENT DATE: 20250507
